FAERS Safety Report 17628494 (Version 1)
Quarter: 2020Q2

REPORT INFORMATION
  Report Type: Spontaneous
  Country: IT (occurrence: IT)
  Receive Date: 20200406
  Receipt Date: 20200406
  Transmission Date: 20200713
  Serious: Yes (Other)
  Sender: FDA-Public Use
  Company Number: IT-TEVA-2020-IT-1218824

PATIENT
  Age: 60 Year
  Sex: Female

DRUGS (2)
  1. PALBOCICLIB [Suspect]
     Active Substance: PALBOCICLIB
     Indication: BREAST CANCER
     Dosage: FIRST-LINE THERAPY; 21 DAYS ON AND 7 DAYS OFF BASIS
     Route: 048
     Dates: start: 201811, end: 201905
  2. LETROZOLE. [Suspect]
     Active Substance: LETROZOLE
     Indication: BREAST CANCER
     Dosage: FIRST-LINE THERAPY; 21 DAYS ON AND 7 DAYS OFF BASIS
     Route: 048
     Dates: start: 201811

REACTIONS (7)
  - Paraesthesia [Unknown]
  - Neutropenia [Unknown]
  - Dry mouth [Unknown]
  - Dysgeusia [Unknown]
  - Tongue discomfort [Recovered/Resolved]
  - Glossodynia [Recovered/Resolved]
  - Dysaesthesia [Unknown]
